FAERS Safety Report 4892131-7 (Version None)
Quarter: 2006Q1

REPORT INFORMATION
  Report Type: 
  Country: None (occurrence: None)
  Receive Date: 20060124
  Receipt Date: 20051014
  Transmission Date: 20060701
  Serious: No
  Sender: FDA-Public Use
  Company Number: MK200510-0127-1

PATIENT
  Age: 33 Year
  Sex: Female

DRUGS (3)
  1. NEUTROSPEC [Suspect]
     Indication: OSTEOMYELITIS
     Dosage: 200 MCI, ONCE, IV
     Route: 042
     Dates: start: 20051014, end: 20051014
  2. IBUPROFEN [Concomitant]
  3. VICODIN [Concomitant]

REACTIONS (7)
  - CHILLS [None]
  - DIZZINESS [None]
  - FEELING HOT [None]
  - FLUSHING [None]
  - HYPERTENSION [None]
  - OXYGEN SATURATION DECREASED [None]
  - TACHYCARDIA [None]
